FAERS Safety Report 6427889-9 (Version None)
Quarter: 2009Q4

REPORT INFORMATION
  Report Type: 
  Country: None (occurrence: None)
  Receive Date: 20091105
  Receipt Date: 20091102
  Transmission Date: 20100525
  Serious: Yes (Hospitalization)
  Sender: FDA-Public Use
  Company Number: NZ-ASTRAZENECA-2009SE23567

PATIENT
  Age: 36 Year
  Sex: Female

DRUGS (5)
  1. QUETIAPINE [Suspect]
     Route: 048
     Dates: start: 20031201, end: 20040224
  2. TRAMADOL HCL [Interacting]
     Route: 048
     Dates: start: 20040224, end: 20040224
  3. AMITRIPTYLINE [Concomitant]
     Route: 048
     Dates: end: 20040223
  4. GEN ANAESTHETICS UNCLASSIFIED [Concomitant]
     Route: 042
     Dates: start: 20040224, end: 20040224
  5. PARACETAMOL [Concomitant]
     Route: 048
     Dates: start: 20040224

REACTIONS (2)
  - CONVULSION [None]
  - DRUG INTERACTION [None]
